FAERS Safety Report 4919535-8 (Version None)
Quarter: 2006Q1

REPORT INFORMATION
  Report Type: 
  Country: None (occurrence: None)
  Receive Date: 20060216
  Receipt Date: 20060127
  Transmission Date: 20060701
  Serious: Yes (Other)
  Sender: FDA-Public Use
  Company Number: US200601004775

PATIENT
  Age: 60 Year
  Sex: Female

DRUGS (2)
  1. HUMALOG MIX 75/25 [Suspect]
     Indication: DIABETES MELLITUS
     Dosage: 44 U, DAILY (1/D)
  2. HUMALOG MIX PEN (HUMALOG MIX PEN) PEN, DISPOSABLE [Concomitant]

REACTIONS (2)
  - DEMENTIA [None]
  - PHARMACEUTICAL PRODUCT COMPLAINT [None]
